FAERS Safety Report 8006548-5 (Version None)
Quarter: 2011Q4

REPORT INFORMATION
  Report Type: 
  Country: None (occurrence: None)
  Receive Date: 20111227
  Receipt Date: 20111220
  Transmission Date: 20120403
  Serious: Yes (Hospitalization)
  Sender: FDA-Public Use
  Company Number: US-AMGEN-USASP2011068024

PATIENT
  Age: 64 Year
  Sex: Female

DRUGS (1)
  1. ENBREL [Suspect]
     Indication: PSORIASIS
     Dosage: 50 MG, QWK
     Dates: start: 20110704

REACTIONS (5)
  - COUGH [None]
  - CONSTIPATION [None]
  - BREAST TENDERNESS [None]
  - VASCULAR GRAFT [None]
  - BREAST PAIN [None]
